FAERS Safety Report 15860840 (Version 3)
Quarter: 2019Q1

REPORT INFORMATION
  Report Type: Spontaneous
  Country: US (occurrence: US)
  Receive Date: 20190124
  Receipt Date: 20190131
  Transmission Date: 20190417
  Serious: Yes (Other)
  Sender: FDA-Public Use
  Company Number: US-TOLMAR, INC.-2019US000574

PATIENT

DRUGS (6)
  1. PROLIA [Concomitant]
     Active Substance: DENOSUMAB
     Dosage: UNK
     Dates: start: 201803
  2. ELIGARD [Suspect]
     Active Substance: LEUPROLIDE ACETATE
     Dosage: 45 MG, 6 MONTH DOSE
     Route: 058
     Dates: start: 20181126
  3. VITAMIN D                          /00107901/ [Concomitant]
     Active Substance: ERGOCALCIFEROL
  4. TYLENOL [Concomitant]
     Active Substance: ACETAMINOPHEN
  5. NAPROSYN [Concomitant]
     Active Substance: NAPROXEN
  6. ELIGARD [Suspect]
     Active Substance: LEUPROLIDE ACETATE
     Indication: PROSTATE CANCER
     Dosage: 45 MG, 6 MONTH DOSE
     Route: 058
     Dates: start: 20180521

REACTIONS (12)
  - Back disorder [Unknown]
  - Hot flush [Not Recovered/Not Resolved]
  - Buttock injury [Unknown]
  - Fractured sacrum [Unknown]
  - Weight increased [Unknown]
  - Hypoaesthesia [Not Recovered/Not Resolved]
  - Hypoaesthesia [Not Recovered/Not Resolved]
  - Pain [Unknown]
  - Lumbar vertebral fracture [Recovered/Resolved]
  - Osteoporosis [Unknown]
  - Condition aggravated [Not Recovered/Not Resolved]
  - Walking aid user [Unknown]

NARRATIVE: CASE EVENT DATE: 201701
